FAERS Safety Report 5988748-9 (Version None)
Quarter: 2008Q4

REPORT INFORMATION
  Report Type: 
  Country: None (occurrence: None)
  Receive Date: 20081210
  Receipt Date: 20081202
  Transmission Date: 20090506
  Serious: Yes (Hospitalization)
  Sender: FDA-Public Use
  Company Number: PHHY2008JP29905

PATIENT
  Age: 81 Year
  Sex: Female

DRUGS (4)
  1. PARLODEL [Suspect]
     Indication: PARKINSONISM
     Dosage: UNK
     Route: 048
  2. CARBIDOPA + LEVODOPA [Concomitant]
  3. MEVALOTIN [Concomitant]
  4. FLOMOX [Concomitant]

REACTIONS (1)
  - PNEUMONIA [None]
